FAERS Safety Report 10041445 (Version 1)
Quarter: 2014Q1

REPORT INFORMATION
  Report Type: Spontaneous
  Country: US (occurrence: None)
  Receive Date: 20140326
  Receipt Date: 20140326
  Transmission Date: 20141002
  Serious: Yes (Hospitalization)
  Sender: FDA-Public Use
  Company Number: None

PATIENT
  Age: 71 Year
  Sex: Male
  Weight: 170 kg

DRUGS (4)
  1. CHLORPROMAZINE HCL [Suspect]
     Indication: AGITATION
     Route: 008
     Dates: start: 20120402, end: 20140322
  2. CHLORPROMAZINE HCL [Suspect]
     Indication: AGGRESSION
     Route: 008
     Dates: start: 20120402, end: 20140322
  3. HALOPERIDOL [Concomitant]
  4. OXCARBAZEPINE [Concomitant]

REACTIONS (1)
  - Hypothermia [None]
